FAERS Safety Report 7757900-4 (Version None)
Quarter: 2011Q3

REPORT INFORMATION
  Report Type: 
  Country: None (occurrence: None)
  Receive Date: 20110918
  Receipt Date: 20110503
  Transmission Date: 20111222
  Serious: Yes (Death)
  Sender: FDA-Public Use
  Company Number: PHHO2011RU07608

PATIENT
  Sex: Female
  Weight: 80 kg

DRUGS (1)
  1. EXJADE [Suspect]
     Indication: IRON OVERLOAD
     Dosage: 6.75 MG/KG, DAILY
     Dates: start: 20091001

REACTIONS (1)
  - TOXIC SHOCK SYNDROME [None]
